FAERS Safety Report 17181479 (Version 1)
Quarter: 2019Q4

REPORT INFORMATION
  Report Type: Spontaneous
  Country: US (occurrence: US)
  Receive Date: 20191219
  Receipt Date: 20191219
  Transmission Date: 20200122
  Serious: No
  Sender: FDA-Public Use
  Company Number: US-COOPERSURGICAL, INC.-US-2019CPS000748

PATIENT
  Age: 16 Year
  Sex: Female
  Weight: 57.6 kg

DRUGS (2)
  1. PARAGARD T 380A [Suspect]
     Active Substance: COPPER
     Dosage: UNK
     Route: 015
     Dates: start: 20190307
  2. PARAGARD T 380A [Suspect]
     Active Substance: COPPER
     Indication: CONTRACEPTION
     Dosage: UNK
     Route: 015
     Dates: start: 20190204, end: 20190307

REACTIONS (6)
  - Vulvovaginal burning sensation [Unknown]
  - Escherichia urinary tract infection [Unknown]
  - Pyrexia [Unknown]
  - Menorrhagia [Unknown]
  - Abdominal pain [Unknown]
  - Device expulsion [Recovered/Resolved]

NARRATIVE: CASE EVENT DATE: 20190301
